FAERS Safety Report 4789208-3 (Version None)
Quarter: 2005Q4

REPORT INFORMATION
  Report Type: 
  Country: None (occurrence: None)
  Receive Date: 20051005
  Receipt Date: 20050929
  Transmission Date: 20060501
  Serious: Yes (Hospitalization)
  Sender: FDA-Public Use
  Company Number: US-MERCK-0510USA00345

PATIENT
  Age: 73 Year
  Sex: Female
  Weight: 95 kg

DRUGS (9)
  1. VIOXX [Suspect]
     Indication: ARTHRITIS
     Route: 048
     Dates: start: 19990101, end: 20020101
  2. DIGOXIN [Concomitant]
     Route: 065
  3. LASIX [Concomitant]
     Route: 065
  4. PRILOSEC [Concomitant]
     Route: 048
  5. SINEMET [Concomitant]
     Route: 048
  6. BACTRIM [Concomitant]
     Route: 065
  7. HUMALOG [Concomitant]
     Route: 065
  8. PREMARIN [Concomitant]
     Route: 065
  9. PLENDIL [Concomitant]
     Route: 048

REACTIONS (3)
  - COLON CANCER [None]
  - GASTRIC ULCER [None]
  - ISCHAEMIA [None]
